FAERS Safety Report 7775234-9 (Version None)
Quarter: 2011Q3

REPORT INFORMATION
  Report Type: 
  Country: None (occurrence: None)
  Receive Date: 20110923
  Receipt Date: 20110914
  Transmission Date: 20111222
  Serious: Yes (Hospitalization, Other)
  Sender: FDA-Public Use
  Company Number: US-MERCK-1107USA01832

PATIENT
  Age: 63 Year
  Sex: Female
  Weight: 58 kg

DRUGS (4)
  1. FOSAMAX [Suspect]
     Indication: OSTEOPOROSIS
     Route: 048
     Dates: start: 20030309, end: 20081118
  2. CALCIUM (UNSPECIFIED) [Concomitant]
     Route: 065
  3. VITAMINS (UNSPECIFIED) [Concomitant]
     Route: 065
  4. BONIVA [Suspect]
     Indication: OSTEOPOROSIS
     Route: 065
     Dates: start: 20060824

REACTIONS (39)
  - URINARY TRACT OBSTRUCTION [None]
  - BLOOD CHOLESTEROL INCREASED [None]
  - BREAST CYST [None]
  - ASTHMA [None]
  - GASTROINTESTINAL SOUNDS ABNORMAL [None]
  - ARTHRALGIA [None]
  - FLANK PAIN [None]
  - VOMITING [None]
  - URTICARIA [None]
  - OSTEOARTHRITIS [None]
  - ABDOMINAL PAIN [None]
  - BLOOD PRESSURE INCREASED [None]
  - CHILLS [None]
  - OESTROGEN DEFICIENCY [None]
  - SPONDYLOLISTHESIS [None]
  - DRUG HYPERSENSITIVITY [None]
  - RENAL COLIC [None]
  - TONSILLAR DISORDER [None]
  - PAIN IN EXTREMITY [None]
  - PYELONEPHRITIS [None]
  - INTERMITTENT CLAUDICATION [None]
  - DEPRESSION [None]
  - ANAEMIA MACROCYTIC [None]
  - NERVOUSNESS [None]
  - MELANOCYTIC NAEVUS [None]
  - BACK PAIN [None]
  - SPIDER VEIN [None]
  - BODY MASS INDEX DECREASED [None]
  - ARTERIOSCLEROSIS [None]
  - FEMUR FRACTURE [None]
  - CONVULSION [None]
  - HYPERLIPIDAEMIA [None]
  - HAEMORRHAGIC ANAEMIA [None]
  - ANGIOPATHY [None]
  - ANXIETY [None]
  - ARTHROPATHY [None]
  - VITAMIN D DEFICIENCY [None]
  - RIB FRACTURE [None]
  - LERICHE SYNDROME [None]
